FAERS Safety Report 8867292 (Version 1)
Quarter: 2012Q4

REPORT INFORMATION
  Report Type: 
  Country: US (occurrence: US)
  Receive Date: 20121025
  Receipt Date: 20121025
  Transmission Date: 20130627
  Serious: No
  Sender: FDA-Public Use
  Company Number: US-AMGEN-USASP2012015937

PATIENT
  Age: 51 Year
  Sex: Female

DRUGS (6)
  1. ENBREL [Suspect]
     Indication: PRODUCT USED FOR UNKNOWN INDICATION
     Dosage: 50 mg, qwk
     Route: 058
  2. FISH OIL [Concomitant]
     Dosage: UNK
  3. METHYLPRED [Concomitant]
     Dosage: 4 mg, UNK
  4. CALCIUM [Concomitant]
     Dosage: UNK
  5. VITAMIN C                          /00008001/ [Concomitant]
     Dosage: 250 mg, UNK
  6. PRESTIGESIC [Concomitant]
     Dosage: UNK

REACTIONS (5)
  - Fatigue [Unknown]
  - Insomnia [Unknown]
  - Muscular weakness [Unknown]
  - Arthralgia [Unknown]
  - Injection site pain [Unknown]
